FAERS Safety Report 5015816-0 (Version None)
Quarter: 2006Q2

REPORT INFORMATION
  Report Type: 
  Country: None (occurrence: None)
  Receive Date: 20060525
  Receipt Date: 20060515
  Transmission Date: 20061013
  Serious: Yes (Death, Other)
  Sender: FDA-Public Use
  Company Number: JP-2006-011198

PATIENT
  Age: 45 Year
  Sex: Male

DRUGS (3)
  1. FLUDARA [Suspect]
     Indication: STEM CELL TRANSPLANT
     Dosage: 180 MG/M2, TOTAL DOSE; INTRAVENOUS
     Route: 042
     Dates: start: 20040101
  2. BUSULFAN [Concomitant]
  3. CYCLOSPORINE [Concomitant]

REACTIONS (5)
  - CYTOMEGALOVIRUS INFECTION [None]
  - DRUG ERUPTION [None]
  - ILL-DEFINED DISORDER [None]
  - STEM CELL TRANSPLANT [None]
  - TOXIC EPIDERMAL NECROLYSIS [None]
